FAERS Safety Report 20633286 (Version 5)
Quarter: 2022Q3

REPORT INFORMATION
  Report Type: Report from Study
  Country: CN (occurrence: CN)
  Receive Date: 20220324
  Receipt Date: 20220706
  Transmission Date: 20221027
  Serious: Yes (Hospitalization)
  Sender: FDA-Public Use
  Company Number: CN-ADC THERAPEUTICS-ADC-2022-000038

PATIENT
  Age: 42 Year
  Sex: Male

DRUGS (2)
  1. LONCASTUXIMAB TESIRINE [Suspect]
     Active Substance: LONCASTUXIMAB TESIRINE
     Indication: Diffuse large B-cell lymphoma refractory
     Dosage: 150 MICROGRAM/KILOGRAM, Q3WK
     Route: 042
     Dates: start: 20220129
  2. XUE SU SHENG [Concomitant]
     Indication: Anaemia
     Dosage: 1 UNIT, TID
     Route: 048
     Dates: start: 20210509

REACTIONS (3)
  - Anaemia [Recovered/Resolved]
  - Platelet count decreased [Recovered/Resolved]
  - Pyrexia [Recovered/Resolved]

NARRATIVE: CASE EVENT DATE: 20220303
